FAERS Safety Report 11653047 (Version 1)
Quarter: 2015Q4

REPORT INFORMATION
  Report Type: Spontaneous
  Country: FR (occurrence: FR)
  Receive Date: 20151022
  Receipt Date: 20151022
  Transmission Date: 20160304
  Serious: Yes (Death)
  Sender: FDA-Public Use
  Company Number: FR-SA-2015SA165673

PATIENT
  Sex: Male
  Weight: .55 kg

DRUGS (13)
  1. DAFALGAN [Suspect]
     Active Substance: ACETAMINOPHEN
     Indication: MATERNAL EXPOSURE TIMING UNSPECIFIED
     Route: 064
  2. DOMPERIDONE ARROW [Suspect]
     Active Substance: DOMPERIDONE
     Indication: MATERNAL EXPOSURE TIMING UNSPECIFIED
     Route: 064
     Dates: start: 201504, end: 201507
  3. DIFFU K [Suspect]
     Active Substance: POTASSIUM CHLORIDE
     Indication: MATERNAL EXPOSURE TIMING UNSPECIFIED
     Route: 064
     Dates: start: 201505, end: 201507
  4. TARDYFERON [Suspect]
     Active Substance: FERROUS SULFATE\FOLIC ACID
     Indication: MATERNAL EXPOSURE TIMING UNSPECIFIED
     Route: 064
     Dates: start: 201505, end: 201507
  5. CALCIDOSE [Suspect]
     Active Substance: CALCIUM CARBONATE
     Indication: MATERNAL EXPOSURE TIMING UNSPECIFIED
     Route: 064
     Dates: start: 201504, end: 201507
  6. DIFFU K [Suspect]
     Active Substance: POTASSIUM CHLORIDE
     Indication: MATERNAL EXPOSURE TIMING UNSPECIFIED
     Route: 064
     Dates: end: 201505
  7. METHYLPREDNISOLONE. [Suspect]
     Active Substance: METHYLPREDNISOLONE
     Indication: MATERNAL EXPOSURE TIMING UNSPECIFIED
     Route: 064
     Dates: start: 20150327, end: 20150403
  8. SPECIAFOLDINE [Suspect]
     Active Substance: FOLIC ACID
     Indication: MATERNAL EXPOSURE TIMING UNSPECIFIED
     Route: 064
     Dates: start: 201504, end: 201507
  9. ROWASA [Suspect]
     Active Substance: MESALAMINE
     Indication: MATERNAL EXPOSURE TIMING UNSPECIFIED
     Route: 064
     Dates: start: 201504, end: 201507
  10. CIPROFLOXACINE MYLAN [Suspect]
     Active Substance: CIPROFLOXACIN
     Indication: MATERNAL EXPOSURE TIMING UNSPECIFIED
     Route: 064
     Dates: start: 20150403, end: 20150408
  11. LOVENOX [Suspect]
     Active Substance: ENOXAPARIN SODIUM
     Indication: MATERNAL EXPOSURE TIMING UNSPECIFIED
     Route: 064
     Dates: start: 20150329, end: 20150416
  12. REMICADE [Suspect]
     Active Substance: INFLIXIMAB
     Indication: MATERNAL EXPOSURE TIMING UNSPECIFIED
     Dosage: 5 MG/KG EACH COURSE,4 COURSES
     Route: 064
     Dates: start: 20150401, end: 20150710
  13. SPASFON [Suspect]
     Active Substance: PHLOROGLUCINOL
     Indication: MATERNAL EXPOSURE TIMING UNSPECIFIED
     Dosage: FREQUENCY:AS NEEDED
     Route: 064

REACTIONS (3)
  - Foetal exposure during pregnancy [Fatal]
  - Stillbirth [Fatal]
  - Premature baby [Fatal]

NARRATIVE: CASE EVENT DATE: 20150723
